FAERS Safety Report 8816943 (Version 1)
Quarter: 2012Q4

REPORT INFORMATION
  Report Type: Spontaneous
  Country: KR (occurrence: None)
  Receive Date: 20121002
  Receipt Date: 20121002
  Transmission Date: 20130627
  Serious: Yes (Hospitalization, Other)
  Sender: FDA-Public Use
  Company Number: VAL_00862_2012

PATIENT
  Age: 54 Year
  Sex: Male

DRUGS (6)
  1. CARBAMAZEPINE [Suspect]
     Indication: NEUROPATHY PERIPHERAL
  2. CILOSTAZOL [Suspect]
     Indication: ANTIPLATELET THERAPY
  3. CILOSTAZOL [Suspect]
     Indication: CORONARY ARTERIAL STENT INSERTION
  4. ASPIRIN [Concomitant]
  5. CLOPIDOGREL [Concomitant]
  6. CORTICOSTEROIDS LONG-ACTING B-AGONIST COMBINATION [Concomitant]

REACTIONS (4)
  - Pyrexia [None]
  - Myalgia [None]
  - Hepatitis [None]
  - Drug reaction with eosinophilia and systemic symptoms [None]
